FAERS Safety Report 5454896-5 (Version None)
Quarter: 2007Q3

REPORT INFORMATION
  Report Type: 
  Country: None (occurrence: None)
  Receive Date: 20070917
  Receipt Date: 20061023
  Transmission Date: 20080115
  Serious: No
  Sender: FDA-Public Use
  Company Number: US-ASTRAZENECA-2006UW20461

PATIENT
  Age: 38 Year
  Sex: Male
  Weight: 85.9 kg

DRUGS (2)
  1. SEROQUEL [Suspect]
     Indication: PSYCHOSOMATIC DISEASE
     Route: 048
  2. RISPERDAL [Concomitant]

REACTIONS (3)
  - DIZZINESS [None]
  - PARAESTHESIA ORAL [None]
  - VISION BLURRED [None]
